FAERS Safety Report 22640622 (Version 1)
Quarter: 2023Q2

REPORT INFORMATION
  Report Type: Spontaneous
  Country: US (occurrence: None)
  Receive Date: 20230623
  Receipt Date: 20230623
  Transmission Date: 20230722
  Serious: Yes (Hospitalization)
  Sender: FDA-Public Use
  Company Number: None

PATIENT
  Sex: Male

DRUGS (14)
  1. CAPECITABINE [Suspect]
     Active Substance: CAPECITABINE
     Indication: Colon cancer
     Dosage: 5 TABS BID PO 2WK ON, 1WK OFF?
     Route: 048
  2. TYLENOL [Concomitant]
  3. COLACE [Concomitant]
  4. MELATONIN [Concomitant]
     Active Substance: MELATONIN
  5. SENNA [Concomitant]
     Active Substance: SENNA LEAF\SENNOSIDES\SENNOSIDES A AND B
  6. ZINC GLUCONATE [Concomitant]
  7. VIT B-12 [Concomitant]
  8. VIT D3 [Concomitant]
  9. FERROUS GLUCONATE [Concomitant]
  10. LIDOCAINE VISCOUS MOUTH [Concomitant]
  11. MILK OF MAGNESIA [Concomitant]
  12. MYLANTA [Concomitant]
  13. OMEPRAZOLE [Concomitant]
  14. TUMS [Concomitant]

REACTIONS (1)
  - Hospitalisation [None]
